FAERS Safety Report 11228612 (Version 10)
Quarter: 2016Q1

REPORT INFORMATION
  Report Type: Report from Study
  Country: US (occurrence: US)
  Receive Date: 20150630
  Receipt Date: 20160330
  Transmission Date: 20160525
  Serious: Yes (Death, Other)
  Sender: FDA-Public Use
  Company Number: US-GILEAD-2015-0160545

PATIENT
  Age: 62 Year
  Sex: Male

DRUGS (1)
  1. AMBRISENTAN [Suspect]
     Active Substance: AMBRISENTAN
     Indication: PULMONARY HYPERTENSION
     Dosage: 10 MG, QD
     Route: 065
     Dates: start: 20120824

REACTIONS (11)
  - Oedema peripheral [Unknown]
  - Dyspnoea [Unknown]
  - Death [Fatal]
  - Cough [Unknown]
  - Dizziness [Unknown]
  - Loss of consciousness [Unknown]
  - Face injury [Unknown]
  - Hypotension [Unknown]
  - Syncope [Recovered/Resolved]
  - Asthenia [Unknown]
  - Fall [Unknown]

NARRATIVE: CASE EVENT DATE: 201506
